FAERS Safety Report 9496111 (Version 1)
Quarter: 2013Q3

REPORT INFORMATION
  Report Type: Report from Study
  Country: ES (occurrence: ES)
  Receive Date: 20130904
  Receipt Date: 20130904
  Transmission Date: 20140515
  Serious: Yes (Other)
  Sender: FDA-Public Use
  Company Number: ES-ROCHE-1269645

PATIENT
  Sex: 0

DRUGS (1)
  1. CAPECITABINE [Suspect]
     Indication: RECTAL CANCER
     Route: 048

REACTIONS (5)
  - Diarrhoea [Unknown]
  - Radiation skin injury [Unknown]
  - Anaemia [Unknown]
  - Urinary tract disorder [Unknown]
  - Vomiting [Unknown]
